FAERS Safety Report 10525526 (Version 2)
Quarter: 2014Q4

REPORT INFORMATION
  Report Type: Spontaneous
  Country: US (occurrence: US)
  Receive Date: 20141017
  Receipt Date: 20141030
  Transmission Date: 20150528
  Serious: Yes (Other)
  Sender: FDA-Public Use
  Company Number: US-PFIZER INC-2014282252

PATIENT
  Age: 83 Year
  Sex: Male

DRUGS (2)
  1. GABAPENTIN. [Suspect]
     Active Substance: GABAPENTIN
     Dosage: 300 MG, 1X/DAY
  2. GABAPENTIN. [Suspect]
     Active Substance: GABAPENTIN
     Dosage: 900 MG, 1X/DAY

REACTIONS (10)
  - Hyperhidrosis [Unknown]
  - Muscular weakness [Unknown]
  - Dementia Alzheimer^s type [Unknown]
  - Dementia [Unknown]
  - Blood glucose decreased [Unknown]
  - Mood swings [Unknown]
  - Influenza [Unknown]
  - Cough [Unknown]
  - Drug withdrawal syndrome [Unknown]
  - Sleep disorder [Unknown]
